FAERS Safety Report 8374087-8 (Version None)
Quarter: 2012Q2

REPORT INFORMATION
  Report Type: 
  Country: None (occurrence: None)
  Receive Date: 20120521
  Receipt Date: 20120511
  Transmission Date: 20120825
  Serious: Yes (Other)
  Sender: FDA-Public Use
  Company Number: US-BAYER-2012-046828

PATIENT
  Age: 37 Year
  Sex: Female

DRUGS (1)
  1. MIRENA [Suspect]
     Indication: CONTRACEPTION
     Dosage: UNK
     Dates: start: 20110218

REACTIONS (7)
  - VAGINAL DISCHARGE [None]
  - SEXUAL DYSFUNCTION [None]
  - ABDOMINAL PAIN LOWER [None]
  - WEIGHT INCREASED [None]
  - IRRITABILITY [None]
  - MOOD ALTERED [None]
  - URINARY TRACT INFECTION [None]
